FAERS Safety Report 5076792-8 (Version None)
Quarter: 2006Q3

REPORT INFORMATION
  Report Type: 
  Country: None (occurrence: None)
  Receive Date: 20060725
  Receipt Date: 20060307
  Transmission Date: 20061208
  Serious: No
  Sender: FDA-Public Use
  Company Number: 200610565BWH

PATIENT
  Age: 59 Year
  Sex: Male
  Weight: 99.7913 kg

DRUGS (10)
  1. NEXAVAR [Suspect]
     Indication: RENAL CELL CARCINOMA STAGE UNSPECIFIED
     Dosage: 400 MG, BID, ORAL
     Route: 048
     Dates: start: 20060121
  2. MULTI-VITAMIN [Concomitant]
  3. PREVACID [Concomitant]
  4. CARAFATE [Concomitant]
  5. HYDROCORTISONE [Concomitant]
  6. FLUDROCORTISONE [Concomitant]
  7. LAXATIVE [Concomitant]
  8. STOOL SOFTENER [Concomitant]
  9. SCOPALOMINE [Concomitant]
  10. MECLIZINE [Concomitant]

REACTIONS (10)
  - BLOOD PRESSURE INCREASED [None]
  - CONSTIPATION [None]
  - COUGH [None]
  - ERYTHEMA [None]
  - PHARYNGOLARYNGEAL PAIN [None]
  - PRURITUS [None]
  - RASH [None]
  - SCROTAL ULCER [None]
  - STOMATITIS [None]
  - VOMITING [None]
